FAERS Safety Report 8071898-3 (Version None)
Quarter: 2012Q1

REPORT INFORMATION
  Report Type: 
  Country: None (occurrence: None)
  Receive Date: 20120126
  Receipt Date: 20120111
  Transmission Date: 20120608
  Serious: Yes (Other)
  Sender: FDA-Public Use
  Company Number: US-PAR PHARMACEUTICAL, INC-2012SCPR003928

PATIENT

DRUGS (6)
  1. FENTANYL CITRATE [Suspect]
     Indication: FIBROMYALGIA
     Dosage: 18 LOZENGES PER DAY, ORAL TRANSMUCOSAL
     Route: 048
     Dates: end: 20120101
  2. STEROID [Concomitant]
     Indication: PAIN
     Dosage: UNK, UNKNOWN
     Route: 008
     Dates: start: 20111001
  3. VOLTAREN [Concomitant]
     Indication: PAIN
     Dosage: UNK, QD, SINCE COUPLE OF MONTHS
     Route: 061
  4. HYDROCHLOROTHIAZIDE [Concomitant]
     Indication: HYPERTENSION
     Dosage: 12.5 MG, QD
     Route: 048
     Dates: start: 20111019
  5. METAXALONE [Concomitant]
     Indication: MUSCLE SPASMS
     Dosage: UNK, 3 TO 4 TIMES A DAY, PRN
     Route: 048
     Dates: start: 20100527
  6. FENTANYL [Concomitant]
     Indication: PAIN
     Dosage: 200 MCG/ HR Q 48 HOURS
     Route: 061

REACTIONS (5)
  - DRUG ABUSE [None]
  - OVERDOSE [None]
  - OFF LABEL USE [None]
  - MEDICATION ERROR [None]
  - DENTAL CARIES [None]
